FAERS Safety Report 7969679-1 (Version None)
Quarter: 2011Q4

REPORT INFORMATION
  Report Type: 
  Country: None (occurrence: None)
  Receive Date: 20111208
  Receipt Date: 20110901
  Transmission Date: 20120403
  Serious: Yes (Hospitalization, Other)
  Sender: FDA-Public Use
  Company Number: JPI-P-017070

PATIENT
  Age: 45 Year
  Sex: Female
  Weight: 72.5755 kg

DRUGS (6)
  1. DRUG TO TREAT HYPERTENSION [Suspect]
     Indication: HYPERTENSION
     Dates: end: 20110802
  2. DRUG TO TREAT HIGH CHOLESTEROL [Suspect]
     Indication: BLOOD CHOLESTEROL INCREASED
     Dates: end: 20110802
  3. DRUG TO TREAT LOW POTASSIUM [Concomitant]
  4. XYREM [Suspect]
     Indication: CATAPLEXY
     Dosage: 4.5 GM (2.25 GM,2 IN 1 D),ORAL, ,ORAL, (4.5 GRAM 1ST DOSE/3 GRAM 2ND DOSE),ORAL
     Route: 048
     Dates: start: 20080822, end: 20110802
  5. XYREM [Suspect]
     Indication: CATAPLEXY
     Dosage: 4.5 GM (2.25 GM,2 IN 1 D),ORAL, ,ORAL, (4.5 GRAM 1ST DOSE/3 GRAM 2ND DOSE),ORAL
     Route: 048
     Dates: start: 20031001
  6. DESVENLAFAXINE [Concomitant]

REACTIONS (10)
  - NASOPHARYNGITIS [None]
  - PNEUMONIA [None]
  - BLOOD POTASSIUM DECREASED [None]
  - UNRESPONSIVE TO STIMULI [None]
  - UPPER RESPIRATORY TRACT INFECTION [None]
  - MEMORY IMPAIRMENT [None]
  - NAUSEA [None]
  - OVERDOSE [None]
  - VOMITING [None]
  - ASPIRATION [None]
